FAERS Safety Report 13722236 (Version 6)
Quarter: 2017Q3

REPORT INFORMATION
  Report Type: Spontaneous
  Country: DE (occurrence: DE)
  Receive Date: 20170706
  Receipt Date: 20170920
  Transmission Date: 20171127
  Serious: Yes (Other)
  Sender: FDA-Public Use
  Company Number: DE-GLAXOSMITHKLINE-DE2017GSK101482

PATIENT
  Sex: Female
  Weight: 67 kg

DRUGS (5)
  1. REQUIP [Suspect]
     Active Substance: ROPINIROLE HYDROCHLORIDE
     Indication: PARKINSON^S DISEASE
     Dosage: 8 MG, BID
     Route: 048
     Dates: start: 2014
  2. SELEGILINA [Concomitant]
     Indication: PARKINSON^S DISEASE
     Dosage: 1 DF, QD
  3. DUOTRAV [Concomitant]
     Active Substance: TIMOLOL MALEATE\TRAVOPROST
     Indication: GLAUCOMA
     Dosage: UNK UNK, QD
  4. LEVODOPA [Concomitant]
     Active Substance: LEVODOPA
     Dosage: UNK UNK, TID
     Dates: start: 2014
  5. AMANTADIN [Concomitant]
     Active Substance: AMANTADINE
     Indication: PARKINSON^S DISEASE
     Dosage: 1 DF, QD

REACTIONS (7)
  - Constipation [Unknown]
  - Gait disturbance [Unknown]
  - Vertigo [Unknown]
  - Product quality issue [Unknown]
  - Gastrointestinal disorder [Not Recovered/Not Resolved]
  - Blood pressure fluctuation [Unknown]
  - Dizziness [Unknown]

NARRATIVE: CASE EVENT DATE: 2015
